FAERS Safety Report 23768673 (Version 2)
Quarter: 2024Q2

REPORT INFORMATION
  Report Type: Spontaneous
  Country: CN (occurrence: CN)
  Receive Date: 20240422
  Receipt Date: 20240424
  Transmission Date: 20240716
  Serious: Yes (Other)
  Sender: FDA-Public Use
  Company Number: CN-BAYER-2024A058870

PATIENT
  Age: 46 Year
  Sex: Female
  Weight: 64 kg

DRUGS (3)
  1. ULTRAVIST [Suspect]
     Active Substance: IOPROMIDE
     Indication: Computerised tomogram head
     Dosage: 90 ML, ONCE
     Route: 042
     Dates: start: 20240329, end: 20240329
  2. ULTRAVIST [Suspect]
     Active Substance: IOPROMIDE
     Indication: Computerised tomogram neck
  3. ULTRAVIST [Suspect]
     Active Substance: IOPROMIDE
     Indication: Benign neoplasm

REACTIONS (3)
  - Swelling of eyelid [Recovering/Resolving]
  - Eye movement disorder [Recovering/Resolving]
  - Conjunctival oedema [Recovering/Resolving]

NARRATIVE: CASE EVENT DATE: 20240329
